FAERS Safety Report 21445574 (Version 1)
Quarter: 2022Q4

REPORT INFORMATION
  Report Type: Spontaneous
  Country: US (occurrence: US)
  Receive Date: 20221012
  Receipt Date: 20221012
  Transmission Date: 20230113
  Serious: No
  Sender: FDA-Public Use
  Company Number: US-ABBVIE-4151573

PATIENT
  Age: 55 Year
  Sex: Male
  Weight: 111.13 kg

DRUGS (3)
  1. SKYRIZI [Suspect]
     Active Substance: RISANKIZUMAB-RZAA
     Indication: Psoriasis
     Dosage: STARTED MORE THAN 2 YEARS?FORM STRENGTH: 150 MG
     Route: 058
  2. Pfizer Biontech Covid 19 vaccine [Concomitant]
     Indication: COVID-19 immunisation
     Dosage: TIME INTERVAL: TOTAL: 1ST DOSE
     Route: 030
     Dates: start: 2021, end: 2021
  3. Pfizer Biontech Covid 19 vaccine [Concomitant]
     Indication: COVID-19 immunisation
     Dosage: 2ND DOSE
     Route: 030
     Dates: start: 2021, end: 2021

REACTIONS (4)
  - Hypoaesthesia [Recovering/Resolving]
  - Road traffic accident [Recovered/Resolved]
  - Device issue [Not Recovered/Not Resolved]
  - Contusion [Recovered/Resolved]

NARRATIVE: CASE EVENT DATE: 20220601
